FAERS Safety Report 24129992 (Version 1)
Quarter: 2024Q3

REPORT INFORMATION
  Report Type: Other
  Country: US (occurrence: US)
  Receive Date: 20240724
  Receipt Date: 20240724
  Transmission Date: 20241016
  Serious: Yes (Other)
  Sender: INTERCEPT PHARMACEUTICALS
  Company Number: US-INTERCEPT-PM2024001431

PATIENT
  Sex: Female

DRUGS (25)
  1. OCALIVA [Suspect]
     Active Substance: OBETICHOLIC ACID
     Indication: Primary biliary cholangitis
     Dosage: 5 MILLIGRAM, QD
     Route: 048
     Dates: start: 20221115, end: 202301
  2. OCALIVA [Suspect]
     Active Substance: OBETICHOLIC ACID
     Indication: Product use in unapproved indication
     Dosage: 5 MILLIGRAM, QD
     Route: 048
     Dates: start: 20230318, end: 202312
  3. OCALIVA [Suspect]
     Active Substance: OBETICHOLIC ACID
     Dosage: 5 MILLIGRAM, QOD
     Route: 048
     Dates: start: 202312
  4. URSODIOL [Concomitant]
     Active Substance: URSODIOL
  5. LUBIPROSTONE [Concomitant]
     Active Substance: LUBIPROSTONE
  6. BUPRENORPHINE [Concomitant]
     Active Substance: BUPRENORPHINE
  7. DESVENLAFAXINE [Concomitant]
     Active Substance: DESVENLAFAXINE
  8. NIFEDIPINE [Concomitant]
     Active Substance: NIFEDIPINE
  9. SIMVASTATIN [Concomitant]
     Active Substance: SIMVASTATIN
  10. DICLOFENAC [Concomitant]
     Active Substance: DICLOFENAC
  11. FAMOTIDINE [Concomitant]
     Active Substance: FAMOTIDINE
  12. ATENOLOL [Concomitant]
     Active Substance: ATENOLOL
  13. OMEPRAZOLE [Concomitant]
     Active Substance: OMEPRAZOLE
  14. ZIPRASIDONE [Concomitant]
     Active Substance: ZIPRASIDONE
  15. NURTEC ODT [Concomitant]
     Active Substance: RIMEGEPANT SULFATE
  16. LEVETIRACETAM [Concomitant]
     Active Substance: LEVETIRACETAM
  17. BLISOVI FE 1/20 [Concomitant]
     Active Substance: ETHINYL ESTRADIOL\NORETHINDRONE ACETATE
  18. VALACYCLOVIR [Concomitant]
     Active Substance: VALACYCLOVIR HYDROCHLORIDE
  19. SUMATRIPTAN [Concomitant]
     Active Substance: SUMATRIPTAN
  20. MICROGESTIN [Concomitant]
     Active Substance: ETHINYL ESTRADIOL\NORETHINDRONE ACETATE
  21. SPRAVATO [Concomitant]
     Active Substance: ESKETAMINE
     Dosage: 84 MILLIGRAM
  22. GEODON [Concomitant]
     Active Substance: ZIPRASIDONE HYDROCHLORIDE\ZIPRASIDONE MESYLATE
  23. SEROQUEL [Concomitant]
     Active Substance: QUETIAPINE FUMARATE
  24. PRISTIQ EXTENDED-RELEASE [Concomitant]
     Active Substance: DESVENLAFAXINE SUCCINATE
  25. ADDERALL [Concomitant]
     Active Substance: AMPHETAMINE ASPARTATE\AMPHETAMINE SULFATE\DEXTROAMPHETAMINE SACCHARATE\DEXTROAMPHETAMINE SULFATE

REACTIONS (1)
  - Nephrolithiasis [Unknown]
